FAERS Safety Report 6162800-X (Version None)
Quarter: 2009Q2

REPORT INFORMATION
  Report Type: 
  Country: None (occurrence: None)
  Receive Date: 20090417
  Receipt Date: 20080911
  Transmission Date: 20091009
  Serious: Yes (Death, Hospitalization, Other)
  Sender: FDA-Public Use
  Company Number: AMAN20080014

PATIENT
  Age: 59 Year
  Sex: Female

DRUGS (4)
  1. AMANTADINE HCL [Suspect]
     Dosage: 100 MG, DAILY, PER ORAL
     Route: 048
  2. PRAMIPEXOLE DIHYDROCHLORIDE [Suspect]
     Dosage: 0.25 MG, TID, PER ORAL ; 0.125 MG, TID, PER ORAL
     Route: 048
  3. PRAMIPEXOLE DIHYDROCHLORIDE [Suspect]
     Dosage: 0.25 MG, TID, PER ORAL ; 0.125 MG, TID, PER ORAL
     Route: 048
  4. PROPRANOLOL [Concomitant]

REACTIONS (8)
  - ANAEMIA [None]
  - BLOOD CREATININE INCREASED [None]
  - DRUG TOXICITY [None]
  - GAZE PALSY [None]
  - HYPERTENSION [None]
  - METABOLIC ENCEPHALOPATHY [None]
  - SUDDEN DEATH [None]
  - TOXIC ENCEPHALOPATHY [None]
